FAERS Safety Report 9191430 (Version 1)
Quarter: 2013Q1

REPORT INFORMATION
  Report Type: Spontaneous
  Country: US (occurrence: US)
  Receive Date: 20130326
  Receipt Date: 20130326
  Transmission Date: 20140127
  Serious: No
  Sender: FDA-Public Use
  Company Number: US-ASTRAZENECA-2013SE18133

PATIENT
  Age: 56 Year
  Sex: Female
  Weight: 75.3 kg

DRUGS (10)
  1. NEXIUM [Suspect]
     Indication: IMPAIRED GASTRIC EMPTYING
     Route: 048
  2. NEXIUM [Suspect]
     Indication: GASTROOESOPHAGEAL REFLUX DISEASE
     Route: 048
  3. NEXIUM [Suspect]
     Indication: HIATUS HERNIA
     Route: 048
  4. NEXIUM [Suspect]
     Indication: IRRITABLE BOWEL SYNDROME
     Route: 048
  5. NEXIUM [Suspect]
     Indication: GASTROOESOPHAGEAL REFLUX DISEASE
     Route: 048
  6. MULTIVITAMIN [Concomitant]
     Indication: GENERAL PHYSICAL HEALTH DETERIORATION
  7. MULTIVITAMIN [Concomitant]
     Indication: IMMUNE SYSTEM DISORDER
  8. OMEGA OIL [Concomitant]
     Indication: BLOOD CHOLESTEROL ABNORMAL
  9. OMEGA OIL [Concomitant]
     Indication: BLOOD TRIGLYCERIDES INCREASED
  10. INSULIN PUMP [Concomitant]
     Indication: DIABETES MELLITUS

REACTIONS (3)
  - Hypophagia [Unknown]
  - Malaise [Unknown]
  - Intentional drug misuse [Unknown]
